FAERS Safety Report 8358064-9 (Version None)
Quarter: 2012Q2

REPORT INFORMATION
  Report Type: 
  Country: None (occurrence: None)
  Receive Date: 20120514
  Receipt Date: 20120509
  Transmission Date: 20120825
  Serious: Yes (Death)
  Sender: FDA-Public Use
  Company Number: US-PFIZER INC-2012113092

PATIENT
  Sex: Male

DRUGS (2)
  1. COCAINE [Concomitant]
  2. SILDENAFIL CITRATE [Suspect]

REACTIONS (1)
  - CARDIAC ARREST [None]
